FAERS Safety Report 24405672 (Version 2)
Quarter: 2024Q4

REPORT INFORMATION
  Report Type: Spontaneous
  Country: FR (occurrence: FR)
  Receive Date: 20241007
  Receipt Date: 20241018
  Transmission Date: 20250115
  Serious: Yes (Other)
  Sender: FRESENIUS KABI
  Company Number: None

PATIENT
  Age: 31 Year
  Sex: Female
  Weight: 54 kg

DRUGS (25)
  1. FLUCONAZOLE [Suspect]
     Active Substance: FLUCONAZOLE
     Indication: Fungaemia
     Dosage: 400 MG/12H
     Dates: start: 20240802, end: 20240807
  2. FLUCONAZOLE [Suspect]
     Active Substance: FLUCONAZOLE
     Dosage: 400 MG/12H
     Dates: start: 20240802, end: 20240807
  3. FLUCONAZOLE [Suspect]
     Active Substance: FLUCONAZOLE
     Dosage: 400 MG/12H
     Dates: start: 20240802, end: 20240807
  4. FLUCONAZOLE [Suspect]
     Active Substance: FLUCONAZOLE
     Dosage: 400 MG/12H
     Dates: start: 20240802, end: 20240807
  5. LIDOCAINE [Suspect]
     Active Substance: LIDOCAINE
     Indication: Neuralgia
     Dosage: 54 MILLIGRAM, 1 DOSAGE TOTAL
     Dates: start: 20240803, end: 20240804
  6. LIDOCAINE [Suspect]
     Active Substance: LIDOCAINE
     Dosage: 54 MILLIGRAM, 1 DOSAGE TOTAL
     Dates: start: 20240803, end: 20240804
  7. LIDOCAINE [Suspect]
     Active Substance: LIDOCAINE
     Dosage: 54 MILLIGRAM, 1 DOSAGE TOTAL
     Dates: start: 20240803, end: 20240804
  8. LIDOCAINE [Suspect]
     Active Substance: LIDOCAINE
     Dosage: 54 MILLIGRAM, 1 DOSAGE TOTAL
     Dates: start: 20240803, end: 20240804
  9. PREGABALIN [Suspect]
     Active Substance: PREGABALIN
     Indication: Neuralgia
     Dosage: 100 MG/8H
     Dates: start: 20240721, end: 20240806
  10. PREGABALIN [Suspect]
     Active Substance: PREGABALIN
     Dosage: 100 MG/8H
     Dates: start: 20240721, end: 20240806
  11. PREGABALIN [Suspect]
     Active Substance: PREGABALIN
     Dosage: 100 MG/8H
     Dates: start: 20240721, end: 20240806
  12. PREGABALIN [Suspect]
     Active Substance: PREGABALIN
     Dosage: 100 MG/8H
     Dates: start: 20240721, end: 20240806
  13. BACTRIM [Suspect]
     Active Substance: SULFAMETHOXAZOLE\TRIMETHOPRIM
     Indication: Pneumonia
     Dosage: 400 MG/12H
     Dates: end: 20240806
  14. BACTRIM [Suspect]
     Active Substance: SULFAMETHOXAZOLE\TRIMETHOPRIM
     Dosage: 400 MG/12H
     Dates: start: 20240804, end: 20240806
  15. BACTRIM [Suspect]
     Active Substance: SULFAMETHOXAZOLE\TRIMETHOPRIM
     Dosage: 400 MG/12H
     Dates: start: 20240804, end: 20240806
  16. BACTRIM [Suspect]
     Active Substance: SULFAMETHOXAZOLE\TRIMETHOPRIM
     Dosage: 400 MG/12H
     Dates: start: 20240804, end: 20240806
  17. BACTRIM [Suspect]
     Active Substance: SULFAMETHOXAZOLE\TRIMETHOPRIM
     Dosage: 400 MG/12H
     Route: 042
     Dates: end: 20240806
  18. CIPROFLOXACIN [Concomitant]
     Active Substance: CIPROFLOXACIN
     Indication: Pneumonia
     Dates: start: 20240804, end: 20240806
  19. CIPROFLOXACIN [Concomitant]
     Active Substance: CIPROFLOXACIN
     Dates: start: 20240804, end: 20240806
  20. CIPROFLOXACIN [Concomitant]
     Active Substance: CIPROFLOXACIN
     Dates: start: 20240804, end: 20240806
  21. CIPROFLOXACIN [Concomitant]
     Active Substance: CIPROFLOXACIN
     Dates: start: 20240804, end: 20240806
  22. AVIBACTAM SODIUM\CEFTAZIDIME [Concomitant]
     Active Substance: AVIBACTAM SODIUM\CEFTAZIDIME
     Indication: Pneumonia
     Dosage: 2 G/0,5 G, POWDER FOR SOLUTION TO BE DILUTED FOR INFUSION
     Dates: start: 20240804, end: 20240806
  23. AVIBACTAM SODIUM\CEFTAZIDIME [Concomitant]
     Active Substance: AVIBACTAM SODIUM\CEFTAZIDIME
     Dosage: 2 G/0,5 G, POWDER FOR SOLUTION TO BE DILUTED FOR INFUSION
     Dates: start: 20240804, end: 20240806
  24. AVIBACTAM SODIUM\CEFTAZIDIME [Concomitant]
     Active Substance: AVIBACTAM SODIUM\CEFTAZIDIME
     Dosage: 2 G/0,5 G, POWDER FOR SOLUTION TO BE DILUTED FOR INFUSION
     Dates: start: 20240804, end: 20240806
  25. AVIBACTAM SODIUM\CEFTAZIDIME [Concomitant]
     Active Substance: AVIBACTAM SODIUM\CEFTAZIDIME
     Dosage: 2 G/0,5 G, POWDER FOR SOLUTION TO BE DILUTED FOR INFUSION
     Dates: start: 20240804, end: 20240806

REACTIONS (2)
  - Off label use [Unknown]
  - Agranulocytosis [Recovered/Resolved]

NARRATIVE: CASE EVENT DATE: 20240803
